FAERS Safety Report 7513308-8 (Version None)
Quarter: 2011Q2

REPORT INFORMATION
  Report Type: 
  Country: None (occurrence: None)
  Receive Date: 20110525
  Receipt Date: 20110525
  Transmission Date: 20111010
  Serious: Yes (Other)
  Sender: FDA-Public Use
  Company Number: None

PATIENT
  Sex: Male
  Weight: 83.0083 kg

DRUGS (1)
  1. DIOVAN [Suspect]
     Indication: BLOOD PRESSURE
     Dosage: ONE DAILY  MARCH/APR. 2011

REACTIONS (2)
  - RASH GENERALISED [None]
  - PRURITUS [None]
